FAERS Safety Report 4400841-0 (Version None)
Quarter: 2004Q3

REPORT INFORMATION
  Report Type: 
  Country: None (occurrence: None)
  Receive Date: 20040714
  Receipt Date: 20040625
  Transmission Date: 20050211
  Serious: Yes (Hospitalization)
  Sender: FDA-Public Use
  Company Number: USA040671215

PATIENT
  Age: 69 Year
  Sex: Female

DRUGS (3)
  1. EVISTA [Suspect]
     Indication: OSTEOPOROSIS
     Dates: start: 19980101
  2. FORTEO [Suspect]
     Indication: OSTEOPOROSIS
     Dates: start: 20040601
  3. FOSAMAX [Concomitant]

REACTIONS (9)
  - BONE DISORDER [None]
  - COLON CANCER STAGE II [None]
  - DIZZINESS [None]
  - HAEMORRHAGE [None]
  - INJECTION SITE HAEMORRHAGE [None]
  - NAUSEA [None]
  - SOMNOLENCE [None]
  - TIBIA FRACTURE [None]
  - TREATMENT NONCOMPLIANCE [None]
